FAERS Safety Report 9251685 (Version 2)
Quarter: 2013Q2

REPORT INFORMATION
  Report Type: Spontaneous
  Country: JP (occurrence: JP)
  Receive Date: 20130424
  Receipt Date: 20130514
  Transmission Date: 20140414
  Serious: Yes (Other)
  Sender: FDA-Public Use
  Company Number: PHHY2013JP039283

PATIENT
  Sex: 0

DRUGS (1)
  1. VOLTAREN [Suspect]
     Route: 064
     Dates: start: 19950207, end: 19950207

REACTIONS (4)
  - Autism [Not Recovered/Not Resolved]
  - Vomiting neonatal [Unknown]
  - Hypotonia [Unknown]
  - Foetal exposure during pregnancy [Unknown]
